FAERS Safety Report 8713263 (Version 2)
Quarter: 2012Q4

REPORT INFORMATION
  Report Type: 
  Country: JP (occurrence: JP)
  Receive Date: 20120808
  Receipt Date: 20120921
  Transmission Date: 20130627
  Serious: No
  Sender: FDA-Public Use
  Company Number: JP-ROCHE-1097067

PATIENT
  Age: 81 Year
  Sex: Female
  Weight: 43 kg

DRUGS (9)
  1. ACTEMRA [Suspect]
     Indication: RHEUMATOID ARTHRITIS
     Route: 041
     Dates: start: 20110802, end: 20120627
  2. PROGRAF [Concomitant]
     Indication: RHEUMATOID ARTHRITIS
     Route: 048
     Dates: start: 20080723
  3. PREDNISOLONE [Concomitant]
     Indication: RHEUMATOID ARTHRITIS
     Route: 048
  4. TAKEPRON [Concomitant]
     Route: 048
  5. LOXONIN [Concomitant]
     Route: 048
  6. SELBEX [Concomitant]
     Route: 048
  7. LYRICA [Concomitant]
     Route: 048
     Dates: start: 20100804
  8. PURSENNID [Concomitant]
     Route: 048
  9. AMLODIN [Concomitant]
     Route: 048

REACTIONS (1)
  - Skin mass [Recovering/Resolving]
